FAERS Safety Report 5288369-X (Version None)
Quarter: 2007Q2

REPORT INFORMATION
  Report Type: 
  Country: None (occurrence: None)
  Receive Date: 20070405
  Receipt Date: 20070327
  Transmission Date: 20071010
  Serious: Yes (Death, Hospitalization)
  Sender: FDA-Public Use
  Company Number: US-ABBOTT-07P-163-0363083-00

PATIENT
  Sex: Female

DRUGS (2)
  1. HUMIRA [Suspect]
     Indication: PSORIATIC ARTHROPATHY
     Route: 058
     Dates: start: 20061212
  2. HUMIRA [Suspect]
     Indication: PSORIASIS

REACTIONS (3)
  - NODULE [None]
  - NON-HODGKIN'S LYMPHOMA [None]
  - SEPTIC SHOCK [None]
